FAERS Safety Report 9664762 (Version 1)
Quarter: 2013Q4

REPORT INFORMATION
  Report Type: Report from Study
  Country: US (occurrence: US)
  Receive Date: 20131101
  Receipt Date: 20131101
  Transmission Date: 20140711
  Serious: Yes (Other)
  Sender: FDA-Public Use
  Company Number: US-ROCHE-1296738

PATIENT
  Sex: Female

DRUGS (3)
  1. NAPROXEN [Suspect]
     Indication: PRODUCT USED FOR UNKNOWN INDICATION
     Route: 065
  2. ADALIMUMAB [Suspect]
     Indication: RHEUMATOID ARTHRITIS
     Dosage: START DATE IN LATE 1990 S
     Route: 065
  3. ADALIMUMAB [Suspect]
     Dosage: 01/MAY/2013
     Route: 065

REACTIONS (11)
  - Ovarian cyst [Unknown]
  - Uterine leiomyoma [Unknown]
  - Intestinal perforation [Recovered/Resolved]
  - Mammoplasty [Recovered/Resolved]
  - Blood cholesterol increased [Unknown]
  - Hypertension [Unknown]
  - Musculoskeletal pain [Unknown]
  - Pain in extremity [Unknown]
  - Drug ineffective [Unknown]
  - Arthralgia [Unknown]
  - Exostosis [Recovered/Resolved]
